FAERS Safety Report 5030605-9 (Version None)
Quarter: 2006Q2

REPORT INFORMATION
  Report Type: 
  Country: None (occurrence: None)
  Receive Date: 20060615
  Receipt Date: 20060602
  Transmission Date: 20061013
  Serious: Yes (Hospitalization)
  Sender: FDA-Public Use
  Company Number: 2006057659

PATIENT
  Age: 91 Year
  Sex: Female
  Weight: 72.5755 kg

DRUGS (6)
  1. CELEBREX [Suspect]
     Indication: PAIN
     Dosage: 200 MG (200 MG 1 IN 1 D)
     Dates: start: 20010410, end: 20050308
  2. POTASSIUM (POTASSIUM) [Concomitant]
  3. HYDROCHLOROTHIAZIDE [Concomitant]
  4. GLUCOTROL XL [Concomitant]
  5. SOTALOL HCL [Concomitant]
  6. GERITOL (VITAMIN NOS) [Concomitant]

REACTIONS (13)
  - CALCINOSIS [None]
  - CEREBRAL ARTERY THROMBOSIS [None]
  - CEREBRAL ATROPHY [None]
  - CEREBRAL DISORDER [None]
  - CEREBRAL ISCHAEMIA [None]
  - CEREBROVASCULAR ACCIDENT [None]
  - CONDITION AGGRAVATED [None]
  - GAIT DISTURBANCE [None]
  - HYPERTHYROIDISM [None]
  - NASAL MUCOSAL DISORDER [None]
  - PERONEAL NERVE PALSY [None]
  - SINUS DISORDER [None]
  - TOXIC NODULAR GOITRE [None]
